FAERS Safety Report 9297597 (Version 2)
Quarter: 2013Q2

REPORT INFORMATION
  Report Type: Spontaneous
  Country: CO (occurrence: CO)
  Receive Date: 20130520
  Receipt Date: 20130522
  Transmission Date: 20140414
  Serious: Yes (Other)
  Sender: FDA-Public Use
  Company Number: PHHY2013CO049448

PATIENT
  Age: 9 Year
  Sex: Male

DRUGS (2)
  1. TEGRETOL [Suspect]
     Dosage: 200 MG, UNK
  2. TEGRETOL [Suspect]
     Dosage: 350 MG IN THE MORNING, 200 MG AT MIDDAY AND 350 MG AT NIGHT

REACTIONS (2)
  - Epilepsy [Recovered/Resolved]
  - Convulsion [Recovered/Resolved]
